FAERS Safety Report 23398420 (Version 4)
Quarter: 2024Q3

REPORT INFORMATION
  Report Type: Spontaneous
  Country: US (occurrence: US)
  Receive Date: 20240112
  Receipt Date: 20240923
  Transmission Date: 20241017
  Serious: Yes (Other)
  Sender: BRISTOL MYERS SQUIBB
  Company Number: US-BRISTOL-MYERS SQUIBB COMPANY-2024-005165

PATIENT
  Age: 74 Year
  Sex: Female

DRUGS (2)
  1. REVLIMID [Suspect]
     Active Substance: LENALIDOMIDE
     Indication: Plasma cell myeloma
     Dosage: TAKE 1 CAPSULE BY MOUTH EVERY NIGHT AT BEDTIME FOR 21 DAYS ON AND 7 DAY OFF
     Route: 048
     Dates: start: 20240109
  2. REVLIMID [Suspect]
     Active Substance: LENALIDOMIDE
     Dosage: TAKE 1 CAPSULE BY MOUTH EVERY NIGHT AT BEDTIME FOR 21 DAYS ON AND 7 DAYS
     Route: 048

REACTIONS (8)
  - Arthritis [Recovering/Resolving]
  - Decreased appetite [Not Recovered/Not Resolved]
  - Depression [Not Recovered/Not Resolved]
  - Thrombosis [Recovered/Resolved]
  - Fatigue [Not Recovered/Not Resolved]
  - Carpal tunnel syndrome [Not Recovered/Not Resolved]
  - Nerve compression [Not Recovered/Not Resolved]
  - Abdominal discomfort [Not Recovered/Not Resolved]
